FAERS Safety Report 8120718-7 (Version None)
Quarter: 2012Q1

REPORT INFORMATION
  Report Type: 
  Country: None (occurrence: None)
  Receive Date: 20120207
  Receipt Date: 20120130
  Transmission Date: 20120608
  Serious: Yes (Hospitalization)
  Sender: FDA-Public Use
  Company Number: DE-ABBOTT-12P-062-0899202-00

PATIENT
  Age: 41 Year
  Sex: Male
  Weight: 80 kg

DRUGS (5)
  1. SULFADIAZINE [Concomitant]
     Indication: PRODUCT USED FOR UNKNOWN INDICATION
  2. KALETRA [Suspect]
     Indication: HIV INFECTION
     Dates: start: 20110720
  3. TRUVADA 200 [Concomitant]
     Indication: PRODUCT USED FOR UNKNOWN INDICATION
     Dosage: 245MG DAILY
     Dates: start: 20110720
  4. DONAPRIM [Concomitant]
     Indication: PRODUCT USED FOR UNKNOWN INDICATION
     Dosage: 100MG DAILY
  5. COTRIM [Suspect]
     Indication: PRODUCT USED FOR UNKNOWN INDICATION
     Dosage: 160MG DAILY
     Dates: end: 20111204

REACTIONS (4)
  - CONSTIPATION [None]
  - PANCYTOPENIA [None]
  - ABDOMINAL PAIN [None]
  - RENAL FAILURE ACUTE [None]
